FAERS Safety Report 25314442 (Version 1)
Quarter: 2025Q2

REPORT INFORMATION
  Report Type: Report from Study
  Country: CA (occurrence: CA)
  Receive Date: 20250514
  Receipt Date: 20250514
  Transmission Date: 20250717
  Serious: Yes (Other)
  Sender: SANDOZ
  Company Number: CA-SANDOZ-SDZ2025CA031504

PATIENT
  Sex: Female

DRUGS (2)
  1. WYOST [Suspect]
     Active Substance: DENOSUMAB-BBDZ
     Indication: Metastases to bone
     Dosage: SINGLE-USE VIAL: INITIATION: 120 MG/1.7 ML BY SC INJECTION MAINTENANCE: 120 MG/1.7 ML BY SC INJECTIO
     Route: 058
     Dates: start: 202502
  2. WYOST [Suspect]
     Active Substance: DENOSUMAB-BBDZ
     Indication: Breast cancer

REACTIONS (2)
  - Breast cancer metastatic [Unknown]
  - Asthenia [Unknown]

NARRATIVE: CASE EVENT DATE: 20250101
